FAERS Safety Report 8831926 (Version 2)
Quarter: 2012Q4

REPORT INFORMATION
  Report Type: 
  Country: US (occurrence: US)
  Receive Date: 20121008
  Receipt Date: 20121105
  Transmission Date: 20130627
  Serious: No
  Sender: FDA-Public Use
  Company Number: US-ROXANE LABORATORIES, INC.-2012-RO-01906RO

PATIENT
  Age: 53 Year
  Sex: Female

DRUGS (1)
  1. BUTORPHANOL [Suspect]
     Indication: MIGRAINE
     Route: 045

REACTIONS (5)
  - Pollakiuria [Recovered/Resolved]
  - Sedation [Recovered/Resolved]
  - Nausea [Recovered/Resolved]
  - Wrong technique in drug usage process [Unknown]
  - Product quality issue [Unknown]
